FAERS Safety Report 6964647-0 (Version None)
Quarter: 2010Q3

REPORT INFORMATION
  Report Type: 
  Country: None (occurrence: None)
  Receive Date: 20100903
  Receipt Date: 20100830
  Transmission Date: 20110219
  Serious: Yes (Other)
  Sender: FDA-Public Use
  Company Number: US-ASTRAZENECA-2008UW01185

PATIENT
  Age: 25 Year
  Sex: Female
  Weight: 118.4 kg

DRUGS (45)
  1. SEROQUEL [Suspect]
     Indication: BIPOLAR DISORDER
     Route: 048
     Dates: start: 19990101, end: 20060801
  2. SEROQUEL [Suspect]
     Indication: SCHIZOPHRENIA
     Route: 048
     Dates: start: 19990101, end: 20060801
  3. SEROQUEL [Suspect]
     Route: 048
     Dates: start: 20040101, end: 20090101
  4. SEROQUEL [Suspect]
     Route: 048
     Dates: start: 20040101, end: 20090101
  5. SEROQUEL [Suspect]
     Route: 048
     Dates: start: 20010201, end: 20071101
  6. SEROQUEL [Suspect]
     Route: 048
     Dates: start: 20010201, end: 20071101
  7. SEROQUEL [Suspect]
     Dosage: 200-400 MG DAILY
     Route: 048
     Dates: start: 20050708
  8. SEROQUEL [Suspect]
     Dosage: 200-400 MG DAILY
     Route: 048
     Dates: start: 20050708
  9. SEROQUEL [Suspect]
     Route: 048
     Dates: start: 20060822
  10. SEROQUEL [Suspect]
     Route: 048
     Dates: start: 20060822
  11. NEURONTIN [Concomitant]
     Indication: NEUROPATHY PERIPHERAL
     Dates: start: 20070914
  12. GLUCOPHAGE [Concomitant]
     Dates: start: 20070705
  13. ZESTORETIC [Concomitant]
     Dosage: 20/12.5 DAILY
     Dates: start: 20070705
  14. RISPERDAL [Concomitant]
     Dates: start: 20050712
  15. ZYPREXA [Concomitant]
     Indication: SCHIZOPHRENIA
     Dates: start: 20000101, end: 20030101
  16. ZYPREXA [Concomitant]
     Indication: BIPOLAR DISORDER
     Dates: start: 20000101, end: 20030101
  17. RELCORE [Concomitant]
     Dates: start: 20100420
  18. XENADRINE [Concomitant]
     Dates: start: 20100601
  19. LISINOPRIL [Concomitant]
     Indication: MENTAL DISORDER
     Dates: start: 20061005
  20. ABILIFY [Concomitant]
  21. CLOZARIL [Concomitant]
     Dates: start: 20050101
  22. GEODON [Concomitant]
     Dates: start: 20050101
  23. HALDOL [Concomitant]
     Dates: start: 20000101, end: 20060101
  24. FLUOXETINE [Concomitant]
     Dates: start: 20070509
  25. LAMICTAL [Concomitant]
     Dates: start: 20070802
  26. TRAZODONE HCL [Concomitant]
     Dates: start: 20070802
  27. CLONAZEPAM [Concomitant]
     Dates: start: 20050712
  28. HYDROCODONE BITARTRATE AND ACETAMINOPHEN [Concomitant]
     Dosage: 7.5 TO 500 MG,5/500
     Dates: start: 20030726
  29. SULFAMETHOXAZOLE AND TRIMETHOPRIM [Concomitant]
     Dates: start: 20030607
  30. PHENAZOPYRIDINE HCL TAB [Concomitant]
     Dates: start: 20030607
  31. CLOMIPHENE CITRATE [Concomitant]
     Dates: start: 20031023
  32. MEDROXYPROGESTERONE [Concomitant]
     Dates: start: 20041026
  33. FLUCONAZOLE [Concomitant]
     Dates: start: 20050927
  34. RANITIDINE [Concomitant]
     Dates: start: 20050930
  35. PROPOXYPHENE NAPSYLATE AND ACETAMINOPHEN [Concomitant]
     Dosage: 100-650
     Dates: start: 20020410
  36. HYOSCYAMINE [Concomitant]
     Dates: start: 20040430
  37. METRONIDAZOLE [Concomitant]
     Dates: start: 20040722
  38. ADDERALL XR 10 [Concomitant]
     Dates: start: 20050604
  39. NAPROXEN SODIUM [Concomitant]
     Dosage: 550 MG, 275 MG
     Dates: start: 20050615
  40. TRIAMTERENE AND HYDROCHLOROTHIAZIDE [Concomitant]
     Dosage: 37.5/25
     Dates: start: 20050809
  41. PROMETHAZINE [Concomitant]
  42. DEPAKOTE ER [Concomitant]
     Dates: start: 20060908
  43. FUROSEMIDE [Concomitant]
     Dates: start: 20061005
  44. POTASSIUM CL [Concomitant]
     Dates: start: 20061005
  45. CYCLOBENZAPRINE [Concomitant]
     Dates: start: 20061122

REACTIONS (15)
  - AFFECTIVE DISORDER [None]
  - BLOOD CHOLESTEROL INCREASED [None]
  - BLOOD GLUCOSE INCREASED [None]
  - CONVULSION [None]
  - DIABETES MELLITUS [None]
  - DIABETES MELLITUS INADEQUATE CONTROL [None]
  - DIABETIC COMPLICATION [None]
  - GRAND MAL CONVULSION [None]
  - HYPERGLYCAEMIA [None]
  - HYPERLIPIDAEMIA [None]
  - HYPERSENSITIVITY [None]
  - NEUROPATHY PERIPHERAL [None]
  - SEDATION [None]
  - SOMNOLENCE [None]
  - TYPE 2 DIABETES MELLITUS [None]
